FAERS Safety Report 5286620-3 (Version None)
Quarter: 2007Q2

REPORT INFORMATION
  Report Type: 
  Country: None (occurrence: None)
  Receive Date: 20070404
  Receipt Date: 20070326
  Transmission Date: 20071010
  Serious: Yes (Hospitalization)
  Sender: FDA-Public Use
  Company Number: FR-GLAXOSMITHKLINE-B0447894A

PATIENT
  Age: 79 Year
  Sex: Male
  Weight: 63 kg

DRUGS (7)
  1. LAMICTAL [Suspect]
     Route: 048
     Dates: start: 20060601, end: 20061129
  2. VALPROATE SODIUM + VALPROIC ACID [Suspect]
     Dosage: 1000MG PER DAY
     Route: 048
     Dates: start: 20051201
  3. DEPAKINE 500 [Concomitant]
     Dosage: 1500MG PER DAY
     Route: 048
     Dates: start: 20060101, end: 20061002
  4. AMLOR [Concomitant]
     Route: 065
  5. SERMION [Concomitant]
     Route: 065
  6. KARDEGIC [Concomitant]
     Route: 065
  7. MOLSIDOMIN [Concomitant]
     Route: 065

REACTIONS (9)
  - BALANCE DISORDER [None]
  - CONVULSION [None]
  - DEPRESSED LEVEL OF CONSCIOUSNESS [None]
  - DYSKINESIA [None]
  - EPILEPSY [None]
  - ERUCTATION [None]
  - FALL [None]
  - FATIGUE [None]
  - MALAISE [None]
